FAERS Safety Report 7147944-8 (Version None)
Quarter: 2010Q4

REPORT INFORMATION
  Report Type: 
  Country: None (occurrence: None)
  Receive Date: 20101209
  Receipt Date: 20101130
  Transmission Date: 20110411
  Serious: Yes (Other)
  Sender: FDA-Public Use
  Company Number: CA-JNJFOC-20101201436

PATIENT
  Sex: Female
  Weight: 82.1 kg

DRUGS (11)
  1. REMICADE [Suspect]
     Indication: ANKYLOSING SPONDYLITIS
     Route: 042
  2. CYCLOBENZAPRINE [Concomitant]
  3. REACTINE [Concomitant]
  4. ORTHO TRI-CYCLEN [Concomitant]
  5. CELEBREX [Concomitant]
  6. CYMBALTA [Concomitant]
  7. TRAZODONE [Concomitant]
  8. DIPROSONE [Concomitant]
  9. NEXIUM [Concomitant]
  10. MORPHINE SULFATE [Concomitant]
  11. ALL OTHER THERAPEUTIC DRUGS [Concomitant]

REACTIONS (1)
  - ANIMAL BITE [None]
